FAERS Safety Report 8989079 (Version 1)
Quarter: 2012Q4

REPORT INFORMATION
  Report Type: Spontaneous
  Country: US (occurrence: None)
  Receive Date: 20121224
  Receipt Date: 20121224
  Transmission Date: 20130627
  Serious: Yes (Other)
  Sender: FDA-Public Use
  Company Number: None

PATIENT
  Age: 66 Year
  Sex: Female
  Weight: 58.8 kg

DRUGS (11)
  1. CEREZYME [Suspect]
     Indication: GAUCHER^S DISEASE
     Dosage: 2,800 units every 2 weeks IV
     Route: 042
     Dates: start: 20040101, end: 20121221
  2. VITAMIN D [Concomitant]
  3. VITAMIN B-100 [Concomitant]
  4. COENZYME Q10 [Concomitant]
  5. OPC -GRAPE SEED EXTRACT- [Concomitant]
  6. SUFEDRIN [Concomitant]
  7. ACETAMINOPHEN [Concomitant]
  8. LIQUID COLLAGEN [Concomitant]
  9. APPLE PECTIN [Concomitant]
  10. VITAMIN K2 [Concomitant]
  11. CALCIUM 3000 [Concomitant]

REACTIONS (3)
  - Swelling face [None]
  - Oedema peripheral [None]
  - Feeling hot [None]
